FAERS Safety Report 19265160 (Version 6)
Quarter: 2021Q3

REPORT INFORMATION
  Report Type: Report from Study
  Country: US (occurrence: US)
  Receive Date: 20210517
  Receipt Date: 20210823
  Transmission Date: 20211014
  Serious: Yes (Hospitalization, Other)
  Sender: FDA-Public Use
  Company Number: NVSC2021US105098

PATIENT
  Age: 36 Year
  Sex: Female
  Weight: 68.98 kg

DRUGS (4)
  1. TREPROSTINIL. [Suspect]
     Active Substance: TREPROSTINIL
     Indication: PULMONARY ARTERIAL HYPERTENSION
     Dosage: 10 NG/KG/MIN, CONT
     Route: 042
     Dates: start: 20210305
  2. TREPROSTINIL. [Suspect]
     Active Substance: TREPROSTINIL
     Dosage: 30 NG/KG/MIN, CONT
     Route: 042
  3. TREPROSTINIL. [Suspect]
     Active Substance: TREPROSTINIL
     Dosage: 20 NG/KG/MIN, CONT
     Route: 042
     Dates: start: 20210503
  4. SILDENAFIL CITRATE. [Concomitant]
     Active Substance: SILDENAFIL CITRATE
     Indication: PRODUCT USED FOR UNKNOWN INDICATION
     Dosage: UNK
     Route: 065

REACTIONS (15)
  - Catheter site pruritus [Unknown]
  - Vascular device infection [Unknown]
  - Dizziness [Unknown]
  - Pruritus [Unknown]
  - Poor quality product administered [Unknown]
  - Fatigue [Unknown]
  - Dehydration [Unknown]
  - Skin irritation [Unknown]
  - Anxiety [Unknown]
  - Haematemesis [Unknown]
  - Haemoptysis [Unknown]
  - Loss of consciousness [Unknown]
  - Dyspnoea exertional [Unknown]
  - Catheter site erythema [Unknown]
  - Rash [Unknown]

NARRATIVE: CASE EVENT DATE: 20210709
